FAERS Safety Report 19701680 (Version 1)
Quarter: 2021Q3

REPORT INFORMATION
  Report Type: Spontaneous
  Country: US (occurrence: US)
  Receive Date: 20210813
  Receipt Date: 20210813
  Transmission Date: 20211014
  Serious: No
  Sender: FDA-Public Use
  Company Number: US-BAUSCH-BL-2021-026712

PATIENT
  Sex: Male

DRUGS (4)
  1. LATANOPROST OPHTHALMIC SOLUTION 0.005% [Suspect]
     Active Substance: LATANOPROST
     Indication: PRODUCT USED FOR UNKNOWN INDICATION
     Route: 047
  2. DORZOLAMIDE HYDROCHLORIDE OPHTHALMIC SOLUTION, USP 2 % [Suspect]
     Active Substance: DORZOLAMIDE HYDROCHLORIDE
     Indication: PRODUCT USED FOR UNKNOWN INDICATION
     Route: 047
  3. TACROLIMUS OINTMENT [Concomitant]
     Active Substance: TACROLIMUS
     Indication: SKIN IRRITATION
  4. TACROLIMUS OINTMENT [Concomitant]
     Active Substance: TACROLIMUS
     Indication: SKIN BURNING SENSATION

REACTIONS (1)
  - Skin burning sensation [Unknown]
